FAERS Safety Report 19185341 (Version 1)
Quarter: 2021Q2

REPORT INFORMATION
  Report Type: Spontaneous
  Country: US (occurrence: US)
  Receive Date: 20210427
  Receipt Date: 20210427
  Transmission Date: 20210717
  Serious: Yes (Hospitalization)
  Sender: FDA-Public Use
  Company Number: None

PATIENT
  Age: 65 Year
  Sex: Male
  Weight: 81 kg

DRUGS (3)
  1. CARVEDILOL 25MG [Concomitant]
     Active Substance: CARVEDILOL
  2. ONDANSETRON 4MG IV PUSH ONCE [Concomitant]
     Dates: start: 20210426, end: 20210426
  3. BAMLANIVIMAB AND ETESEVIMAB [Suspect]
     Active Substance: BAMLANIVIMAB\ETESEVIMAB
     Indication: COVID-19
     Dates: start: 20210426, end: 20210426

REACTIONS (7)
  - Amnesia [None]
  - Infusion related reaction [None]
  - Heart rate decreased [None]
  - Urinary incontinence [None]
  - Haemodynamic instability [None]
  - Dizziness [None]
  - Mental status changes [None]

NARRATIVE: CASE EVENT DATE: 20210426
